FAERS Safety Report 5016792-7 (Version None)
Quarter: 2006Q2

REPORT INFORMATION
  Report Type: 
  Country: None (occurrence: None)
  Receive Date: 20060602
  Receipt Date: 20060116
  Transmission Date: 20061013
  Serious: No
  Sender: FDA-Public Use
  Company Number: US-GLAXOSMITHKLINE-A0589862A

PATIENT
  Age: 76 Year
  Sex: Female
  Weight: 54.5 kg

DRUGS (2)
  1. AUGMENTIN XR [Suspect]
     Indication: COUGH
     Dosage: 2G TWICE PER DAY
     Route: 048
     Dates: start: 20060104, end: 20060114
  2. NO CONCURRENT MEDICATION [Concomitant]

REACTIONS (2)
  - PRURITUS [None]
  - RASH [None]
